FAERS Safety Report 7526664-1 (Version None)
Quarter: 2011Q2

REPORT INFORMATION
  Report Type: 
  Country: None (occurrence: None)
  Receive Date: 20110606
  Receipt Date: 20110522
  Transmission Date: 20111010
  Serious: Yes (Other)
  Sender: FDA-Public Use
  Company Number: GB-NAPPMUNDI-GBR-2010-0006434

PATIENT
  Sex: Male

DRUGS (22)
  1. WARFARIN SODIUM [Concomitant]
     Dosage: 500 MCG, UNK
  2. AMITRIPTYLINE HCL [Concomitant]
     Dosage: 25 MG, UNK
  3. SOTALOL HCL [Concomitant]
     Dosage: 40 MG,1 AT AM, 2 AT NIGHT
     Dates: start: 20100205
  4. WARFARIN SODIUM [Concomitant]
     Dosage: 5 MG, UNK
  5. FLUVASTATIN [Concomitant]
     Indication: INSOMNIA
     Dosage: 40 MG, UNK
     Dates: start: 20030730
  6. DIGOXIN [Concomitant]
     Indication: ATRIAL FIBRILLATION
  7. BENDROFLUMETHIAZIDE [Concomitant]
     Dosage: 2.5 MG, DAILY
     Dates: start: 20100205
  8. WARFARIN SODIUM [Concomitant]
     Dosage: 1 UNK, UNK
  9. BETNOVATE [Concomitant]
     Dosage: UNK
     Dates: start: 20100205
  10. FOLIC ACID [Concomitant]
     Dosage: 5 MG, DAILY
     Dates: start: 20100205
  11. METHOTREXATE [Concomitant]
     Dosage: 2.5 MG, 5 WEEKLY
  12. BUTRANS [Suspect]
     Indication: BACK PAIN
     Dosage: 10 MCG, Q1H
     Route: 062
     Dates: start: 20080418
  13. ACETAMINOPHEN [Concomitant]
     Dosage: 500 MG, 1 OR 2 4 TIMES/DAY
     Dates: start: 20100205
  14. DISOPYRAMIDE [Concomitant]
     Dosage: 250 MG, DAILY
  15. TELMISARTAN [Concomitant]
     Dosage: 80 MG, DAILY
     Dates: start: 20100205
  16. BEZALIP-MONO [Concomitant]
     Dosage: UNK
     Dates: start: 20100205
  17. RANITIDINE [Concomitant]
     Indication: DYSPEPSIA
     Dosage: 150 MCG, BID PRN
     Dates: start: 20100205
  18. WARFARIN SODIUM [Concomitant]
     Dosage: 3 MG, UNK
     Dates: start: 20100205
  19. LEVOTHYROXINE SODIUM [Concomitant]
     Dosage: 50 MCG, DAILY
     Dates: start: 20100205
  20. DOXAZOSIN MESYLATE [Concomitant]
     Dosage: 8 MG, DAILY
     Dates: start: 20100205
  21. ZOPICLONE [Concomitant]
     Dosage: 3.75 MG, HALF AT NIGHT
     Dates: start: 20100205
  22. SUMATRIPTAN SUCCINATE [Concomitant]
     Dosage: 100 MG, DAILY
     Dates: start: 20100205

REACTIONS (1)
  - ATRIAL FIBRILLATION [None]
